FAERS Safety Report 6646207-4 (Version None)
Quarter: 2010Q1

REPORT INFORMATION
  Report Type: 
  Country: None (occurrence: None)
  Receive Date: 20100322
  Receipt Date: 20100322
  Transmission Date: 20100710
  Serious: No
  Sender: FDA-Public Use
  Company Number: None

PATIENT
  Sex: Female
  Weight: 58.9676 kg

DRUGS (2)
  1. FORTEO [Suspect]
     Indication: FEMUR FRACTURE
     Dates: start: 20080115, end: 20100114
  2. FORTEO [Suspect]
     Indication: OSTEOPOROSIS
     Dates: start: 20080115, end: 20100114

REACTIONS (6)
  - MUSCLE SPASMS [None]
  - NERVE INJURY [None]
  - NEUROPATHY PERIPHERAL [None]
  - NO THERAPEUTIC RESPONSE [None]
  - PAIN [None]
  - PERONEAL NERVE PALSY [None]
